FAERS Safety Report 5395165-1 (Version None)
Quarter: 2007Q3

REPORT INFORMATION
  Report Type: 
  Country: None (occurrence: None)
  Receive Date: 20070724
  Receipt Date: 20070723
  Transmission Date: 20080115
  Serious: Yes (Other)
  Sender: FDA-Public Use
  Company Number: US-BRISTOL-MYERS SQUIBB COMPANY-13854740

PATIENT
  Age: 75 Year
  Sex: Male

DRUGS (2)
  1. GLUCOPHAGE [Suspect]
  2. LITHIUM CARBONATE [Suspect]

REACTIONS (1)
  - RENAL FAILURE [None]
